FAERS Safety Report 4631863-2 (Version None)
Quarter: 2005Q2

REPORT INFORMATION
  Report Type: 
  Country: None (occurrence: None)
  Receive Date: 20050331
  Receipt Date: 20050205
  Transmission Date: 20051028
  Serious: Yes (Hospitalization)
  Sender: FDA-Public Use
  Company Number: 05P-163-0289677-00

PATIENT
  Age: 77 Year
  Sex: Male

DRUGS (2)
  1. BIAXIN XL [Suspect]
     Indication: SKIN DISORDER
     Dosage: PER ORAL
     Route: 048
     Dates: start: 20050101, end: 20050201
  2. RIFAMPICIN [Suspect]
     Indication: SKIN DISORDER
     Dosage: PER ORAL
     Route: 048
     Dates: start: 20050101, end: 20050201

REACTIONS (3)
  - DRUG INTERACTION [None]
  - HEPATIC ENZYME INCREASED [None]
  - PANCREATITIS [None]
